FAERS Safety Report 5411204-3 (Version None)
Quarter: 2007Q3

REPORT INFORMATION
  Report Type: 
  Country: None (occurrence: None)
  Receive Date: 20070810
  Receipt Date: 20070803
  Transmission Date: 20080115
  Serious: Yes (Other)
  Sender: FDA-Public Use
  Company Number: B0438115A

PATIENT
  Age: 66 Year
  Sex: Female

DRUGS (8)
  1. PAXIL [Suspect]
     Indication: MAJOR DEPRESSION
     Route: 048
     Dates: start: 20051107
  2. OPALMON [Suspect]
     Indication: DRUG USE FOR UNKNOWN INDICATION
     Route: 048
     Dates: start: 20050601
  3. MAGNESIUM OXIDE [Concomitant]
     Route: 048
  4. GASMOTIN [Concomitant]
     Route: 048
  5. PANTOSIN [Concomitant]
     Route: 048
  6. TETRAMIDE [Concomitant]
     Route: 048
  7. ROHYPNOL [Concomitant]
     Route: 048
  8. PURSENNID [Concomitant]
     Route: 048

REACTIONS (5)
  - CONJUNCTIVAL HAEMORRHAGE [None]
  - EPISTAXIS [None]
  - FEELING COLD [None]
  - HAEMATOCHEZIA [None]
  - PAIN [None]
